FAERS Safety Report 16814776 (Version 1)
Quarter: 2019Q4

REPORT INFORMATION
  Report Type: Spontaneous
  Country: US (occurrence: US)
  Receive Date: 20190916
  Receipt Date: 20190916
  Transmission Date: 20200122
  Serious: Yes (Life-Threatening, Disabling, Other)
  Sender: FDA-Public Use
  Company Number: None

PATIENT
  Age: 60 Year
  Sex: Female
  Weight: 90 kg

DRUGS (6)
  1. LYRICA [Concomitant]
     Active Substance: PREGABALIN
  2. CELECOXIB 200MG [Suspect]
     Active Substance: CELECOXIB
     Indication: NEUROPATHY PERIPHERAL
     Dates: start: 20190605, end: 20190614
  3. TELEMISARTAN [Concomitant]
  4. BABY ASPIRIN [Concomitant]
     Active Substance: ASPIRIN
  5. ATENOLOL. [Concomitant]
     Active Substance: ATENOLOL
  6. CELECOXIB 200MG [Suspect]
     Active Substance: CELECOXIB
     Indication: ARTHRITIS
     Dates: start: 20190605, end: 20190614

REACTIONS (11)
  - Mental disorder [None]
  - Thirst [None]
  - Pain [None]
  - Feeding disorder [None]
  - Feeling abnormal [None]
  - Hepatic enzyme increased [None]
  - Liver injury [None]
  - Intentional product use issue [None]
  - Immobile [None]
  - Incoherent [None]
  - Fatigue [None]

NARRATIVE: CASE EVENT DATE: 20190614
